FAERS Safety Report 8223867-8 (Version None)
Quarter: 2012Q1

REPORT INFORMATION
  Report Type: 
  Country: None (occurrence: None)
  Receive Date: 20120321
  Receipt Date: 20120316
  Transmission Date: 20120608
  Serious: Yes (Other)
  Sender: FDA-Public Use
  Company Number: US-PFIZER INC-2012069070

PATIENT
  Sex: Male

DRUGS (2)
  1. CELEBREX [Suspect]
     Indication: FIBROMYALGIA
  2. CELEBREX [Suspect]
     Indication: ARTHRITIS
     Dosage: UNK

REACTIONS (4)
  - DIARRHOEA [None]
  - DRUG EFFECT DECREASED [None]
  - ARTHRITIS [None]
  - MULTIPLE SCLEROSIS [None]
